FAERS Safety Report 21880406 (Version 4)
Quarter: 2023Q1

REPORT INFORMATION
  Report Type: Report from Study
  Country: AU (occurrence: None)
  Receive Date: 20230118
  Receipt Date: 20230213
  Transmission Date: 20230417
  Serious: No
  Sender: FDA-Public Use
  Company Number: AU-Eisai Medical Research-EC-2023-131836

PATIENT
  Age: 67 Year
  Sex: Female
  Weight: 60.6 kg

DRUGS (12)
  1. LENVATINIB [Suspect]
     Active Substance: LENVATINIB
     Indication: Renal cell carcinoma
     Dosage: STARTING DOSE: 20 MG, (DOSE FLUCTUATED)
     Route: 048
     Dates: start: 20220826, end: 20221117
  2. LENVATINIB [Suspect]
     Active Substance: LENVATINIB
     Route: 048
     Dates: start: 20221118
  3. BELZUTIFAN [Suspect]
     Active Substance: BELZUTIFAN
     Indication: Renal cell carcinoma
     Route: 048
     Dates: start: 20220826
  4. IRON [Concomitant]
     Active Substance: IRON
     Dates: start: 20220809
  5. LEVOTHYROXINE SODIUM [Concomitant]
     Active Substance: LEVOTHYROXINE SODIUM
     Dates: start: 2020, end: 20221028
  6. OLMESARTAN MEDOXOMIL [Concomitant]
     Active Substance: OLMESARTAN MEDOXOMIL
     Dates: start: 2018
  7. OLANZAPINE [Concomitant]
     Active Substance: OLANZAPINE
     Dates: start: 2021
  8. ALBUTEROL [Concomitant]
     Active Substance: ALBUTEROL
     Dates: start: 2000
  9. SERETIDE [Concomitant]
     Active Substance: FLUTICASONE PROPIONATE\SALMETEROL XINAFOATE
     Dates: start: 2000
  10. HYDROCHLOROTHIAZIDE [Concomitant]
     Active Substance: HYDROCHLOROTHIAZIDE
     Dates: start: 20220926, end: 20221216
  11. ASPIRIN [Concomitant]
     Active Substance: ASPIRIN
     Dates: start: 20221007
  12. LERCANIDIPINE [Concomitant]
     Active Substance: LERCANIDIPINE
     Dates: start: 20220913, end: 20221028

REACTIONS (1)
  - Fatigue [Recovered/Resolved]

NARRATIVE: CASE EVENT DATE: 20221021
